FAERS Safety Report 6107671-2 (Version None)
Quarter: 2009Q1

REPORT INFORMATION
  Report Type: 
  Country: None (occurrence: None)
  Receive Date: 20090306
  Receipt Date: 20090306
  Transmission Date: 20090719
  Serious: Yes (Other)
  Sender: FDA-Public Use
  Company Number: None

PATIENT
  Age: 53 Year
  Sex: Male
  Weight: 97 kg

DRUGS (2)
  1. ERTAPENEM, 1 GRAM, MERCK [Suspect]
     Indication: PNEUMONIA
     Dosage: 1 GRAM Q24H IV
     Route: 042
     Dates: start: 20081119
  2. DEPACON [Suspect]
     Indication: CONVULSION
     Dosage: 1500MG Q8H IV, LONG TERM
     Route: 042

REACTIONS (4)
  - CONVULSION [None]
  - DRUG INTERACTION [None]
  - DRUG LEVEL DECREASED [None]
  - THERAPY REGIMEN CHANGED [None]
